FAERS Safety Report 6703791-X (Version None)
Quarter: 2010Q2

REPORT INFORMATION
  Report Type: 
  Country: None (occurrence: None)
  Receive Date: 20100430
  Receipt Date: 20100304
  Transmission Date: 20101027
  Serious: Yes (Hospitalization)
  Sender: FDA-Public Use
  Company Number: IN-ROCHE-673609

PATIENT
  Sex: Female
  Weight: 59 kg

DRUGS (12)
  1. TOCILIZUMAB [Suspect]
     Indication: RHEUMATOID ARTHRITIS
     Dosage: FORM: INFUSION,
     Route: 042
     Dates: start: 20090817
  2. TOCILIZUMAB [Suspect]
     Route: 042
     Dates: start: 20091110, end: 20091208
  3. METFORMIN HCL [Concomitant]
  4. PIOGLITAZONE [Concomitant]
  5. METHOTREXATE [Concomitant]
     Route: 030
  6. GLIMEPIRIDE [Concomitant]
  7. HCQS [Concomitant]
     Dosage: DOSE: 200
     Route: 048
  8. PREDNISOLONE [Concomitant]
  9. FOLVITE [Concomitant]
  10. OMEPRAZOLE [Concomitant]
  11. NAPROXEN [Concomitant]
     Dosage: DOSE: 250
  12. CORTICOSTEROIDS [Concomitant]
     Route: 048

REACTIONS (1)
  - CHOLECYSTITIS ACUTE [None]
